FAERS Safety Report 7416462-1 (Version None)
Quarter: 2011Q2

REPORT INFORMATION
  Report Type: 
  Country: None (occurrence: None)
  Receive Date: 20110414
  Receipt Date: 20091122
  Transmission Date: 20111010
  Serious: Yes (Death, Other)
  Sender: FDA-Public Use
  Company Number: US-BAYER-201041938NA

PATIENT
  Age: 74 Year
  Sex: Female
  Weight: 82.9 kg

DRUGS (17)
  1. CELEBREX [Concomitant]
     Route: 048
  2. AMICAR [Concomitant]
     Dosage: 10 G, UNK
     Route: 042
     Dates: start: 20070115, end: 20070115
  3. TRASYLOL [Suspect]
     Indication: AORTIC VALVE REPLACEMENT
     Dosage: UNK
     Route: 042
     Dates: start: 20070115, end: 20070115
  4. PLAVIX [Concomitant]
     Dosage: UNK
     Route: 048
     Dates: end: 20061231
  5. TEMAZEPAM [Concomitant]
     Dosage: 15 MG, UNK
     Route: 048
     Dates: start: 20070113, end: 20070113
  6. STP [Concomitant]
     Dosage: 500
     Route: 042
     Dates: start: 20070115, end: 20070115
  7. HEPARIN [Concomitant]
     Dosage: 30000 U, UNK
     Route: 042
     Dates: start: 20070115, end: 20070115
  8. RED BLOOD CELLS [Concomitant]
     Dosage: 1 U, UNK
     Route: 042
     Dates: start: 20070115
  9. SUFENTANIL [Concomitant]
     Dosage: UNK
     Route: 042
     Dates: start: 20070115, end: 20070115
  10. XANAX [Concomitant]
     Dosage: 0.25 MG, UNK
     Dates: start: 20070113, end: 20070113
  11. VERSED [Concomitant]
     Dosage: 25 MG, UNK
     Route: 042
     Dates: start: 20070115, end: 20070115
  12. PROTAMINE SULFATE [Concomitant]
     Dosage: 250 MG, UNK
     Route: 042
     Dates: start: 20070115, end: 20070115
  13. CITRUCEL [Concomitant]
     Dosage: 1000 MG, UNK
     Route: 048
  14. FLUOXETINE [Concomitant]
     Route: 048
  15. VECURONIUM BROMIDE [Concomitant]
     Dosage: 20 MG, UNK
     Route: 042
     Dates: start: 20070115, end: 20070115
  16. PEPCID [Concomitant]
     Dosage: 20 MG, UNK
     Route: 048
     Dates: start: 20070113, end: 20070113
  17. ACETYLSALICYLIC ACID SRT [Concomitant]
     Dosage: UNK
     Route: 048
     Dates: end: 20061231

REACTIONS (12)
  - PAIN [None]
  - MULTI-ORGAN FAILURE [None]
  - STRESS [None]
  - ANXIETY [None]
  - RENAL FAILURE [None]
  - INJURY [None]
  - RENAL IMPAIRMENT [None]
  - EMOTIONAL DISORDER [None]
  - DEATH [None]
  - RENAL INJURY [None]
  - UNEVALUABLE EVENT [None]
  - FEAR [None]
